FAERS Safety Report 18726832 (Version 2)
Quarter: 2022Q2

REPORT INFORMATION
  Report Type: Spontaneous
  Country: ES (occurrence: ES)
  Receive Date: 20210111
  Receipt Date: 20220413
  Transmission Date: 20220721
  Serious: Yes (Hospitalization)
  Sender: FDA-Public Use
  Company Number: ES-AMERICAN REGENT INC-2021000104

PATIENT
  Age: 68 Year
  Sex: Male

DRUGS (1)
  1. FERINJECT [Suspect]
     Active Substance: FERRIC CARBOXYMALTOSE
     Indication: Anaemia
     Dosage: 500 MILLIGRAM, 1 IN 2 WK
     Route: 042
     Dates: start: 201903

REACTIONS (2)
  - Hypophosphataemia [Unknown]
  - Hypophosphataemic osteomalacia [Unknown]

NARRATIVE: CASE EVENT DATE: 20201203
